FAERS Safety Report 19091163 (Version 1)
Quarter: 2021Q2

REPORT INFORMATION
  Report Type: Spontaneous
  Country: GE (occurrence: GE)
  Receive Date: 20210405
  Receipt Date: 20210405
  Transmission Date: 20210717
  Serious: Yes (Other)
  Sender: FDA-Public Use
  Company Number: GE-GLENMARK PHARMACEUTICALS-2021GMK053099

PATIENT
  Age: 49 Year
  Sex: Female

DRUGS (1)
  1. CLOBETASOL DIPROPIONATE [Suspect]
     Active Substance: CLOBETASOL PROPIONATE
     Indication: RASH
     Dosage: UNK
     Route: 065

REACTIONS (1)
  - Rosacea [Recovering/Resolving]
